FAERS Safety Report 23966000 (Version 1)
Quarter: 2024Q2

REPORT INFORMATION
  Report Type: Spontaneous
  Country: US (occurrence: US)
  Receive Date: 20240612
  Receipt Date: 20240612
  Transmission Date: 20240715
  Serious: Yes (Death)
  Sender: FDA-Public Use
  Company Number: US-AMGEN-USASP2024113073

PATIENT

DRUGS (2)
  1. RITUXIMAB [Suspect]
     Active Substance: RITUXIMAB
     Indication: Familial haemophagocytic lymphohistiocytosis
     Dosage: UNK
     Route: 065
  2. EMAPALUMAB [Suspect]
     Active Substance: EMAPALUMAB
     Indication: Familial haemophagocytic lymphohistiocytosis
     Route: 065

REACTIONS (5)
  - Familial haemophagocytic lymphohistiocytosis [Fatal]
  - Death [Fatal]
  - Transplantation complication [Fatal]
  - Multiple organ dysfunction syndrome [Fatal]
  - Off label use [Unknown]
